FAERS Safety Report 18330676 (Version 4)
Quarter: 2021Q4

REPORT INFORMATION
  Report Type: Spontaneous
  Country: US (occurrence: US)
  Receive Date: 20200930
  Receipt Date: 20211124
  Transmission Date: 20220303
  Serious: No
  Sender: FDA-Public Use
  Company Number: US-PFIZER INC-2020139920

PATIENT
  Age: 65 Year
  Sex: Female

DRUGS (4)
  1. ESTRING [Suspect]
     Active Substance: ESTRADIOL
     Indication: Postmenopause
     Dosage: UNK (INSERT ONCE 2 MONTHS)
  2. ESTRING [Suspect]
     Active Substance: ESTRADIOL
     Indication: Vulvovaginal pruritus
     Dosage: UNK, EVERY 3 MONTHS (INSERTED ESTRADIOL EVERY 90 DAYS)
  3. ESTRING [Suspect]
     Active Substance: ESTRADIOL
     Indication: Vulvovaginal burning sensation
     Dosage: (2MG/7MCG EVERY 60 DAYS)
  4. ESTRING [Suspect]
     Active Substance: ESTRADIOL
     Indication: Vulvovaginal dryness

REACTIONS (6)
  - Drug ineffective [Unknown]
  - Off label use [Unknown]
  - Burning sensation [Unknown]
  - Chalazion [Unknown]
  - Eyelid infection [Unknown]
  - Tooth fracture [Unknown]

NARRATIVE: CASE EVENT DATE: 20190101
